FAERS Safety Report 26126897 (Version 1)
Quarter: 2025Q4

REPORT INFORMATION
  Report Type: Spontaneous
  Country: US (occurrence: US)
  Receive Date: 20251205
  Receipt Date: 20251205
  Transmission Date: 20260117
  Serious: No
  Sender: NOVO NORDISK
  Company Number: US-NOVOPROD-1313625

PATIENT
  Age: 69 Year
  Sex: Female

DRUGS (1)
  1. NOVOLIN 70/30 [Suspect]
     Active Substance: INSULIN HUMAN
     Indication: Type 1 diabetes mellitus
     Dosage: 60 IU, BID
     Route: 058
     Dates: start: 20241027, end: 20241031

REACTIONS (2)
  - Ingrowing nail [Unknown]
  - Fungal infection [Unknown]
